FAERS Safety Report 26140143 (Version 1)
Quarter: 2025Q4

REPORT INFORMATION
  Report Type: Spontaneous
  Country: CN (occurrence: CN)
  Receive Date: 20251210
  Receipt Date: 20251210
  Transmission Date: 20260118
  Serious: Yes (Other)
  Sender: PFIZER
  Company Number: CN-PFIZER INC-PV202500143468

PATIENT
  Age: 42 Year
  Sex: Male

DRUGS (4)
  1. XYNTHA [Suspect]
     Active Substance: MOROCTOCOG ALFA
     Dosage: UNK
     Route: 042
     Dates: start: 202508
  2. XYNTHA [Suspect]
     Active Substance: MOROCTOCOG ALFA
     Dosage: ON THE DAY OF KNEE TOTAL REPLACEMENT
     Route: 042
     Dates: start: 2025, end: 2025
  3. XYNTHA [Suspect]
     Active Substance: MOROCTOCOG ALFA
     Dosage: IN THE FOLLOWING DAYS AFTER SURGERY
     Route: 042
     Dates: start: 2025, end: 2025
  4. XYNTHA [Suspect]
     Active Substance: MOROCTOCOG ALFA
     Dosage: DURING THE REHABILITATION PERIOD
     Route: 042
     Dates: start: 2025

REACTIONS (2)
  - Haemorrhage [Unknown]
  - Knee arthroplasty [Unknown]

NARRATIVE: CASE EVENT DATE: 20250101
